FAERS Safety Report 22609744 (Version 1)
Quarter: 2023Q2

REPORT INFORMATION
  Report Type: Spontaneous
  Country: US (occurrence: None)
  Receive Date: 20230615
  Receipt Date: 20230615
  Transmission Date: 20230722
  Serious: No
  Sender: FDA-Public Use
  Company Number: None

PATIENT
  Sex: Female

DRUGS (1)
  1. ENBREL [Suspect]
     Active Substance: ETANERCEPT
     Indication: Pain in extremity
     Dosage: FREQUENCY : WEEKLY;?
     Route: 058
     Dates: start: 201706

REACTIONS (3)
  - Drug ineffective [None]
  - Pain in extremity [None]
  - Impaired work ability [None]
